FAERS Safety Report 17904584 (Version 5)
Quarter: 2020Q3

REPORT INFORMATION
  Report Type: Spontaneous
  Country: US (occurrence: US)
  Receive Date: 20200617
  Receipt Date: 20200930
  Transmission Date: 20201103
  Serious: No
  Sender: FDA-Public Use
  Company Number: US-TEVA-2020-US-1247974

PATIENT
  Age: 78 Year
  Sex: Female

DRUGS (15)
  1. MINOCYCLINE ACTAVIS [Suspect]
     Active Substance: MINOCYCLINE HYDROCHLORIDE
     Indication: RHEUMATOID ARTHRITIS
  2. LORATADINE. [Concomitant]
     Active Substance: LORATADINE
  3. PRAVASTATIN. [Concomitant]
     Active Substance: PRAVASTATIN
  4. TRAMADOL. [Concomitant]
     Active Substance: TRAMADOL
     Indication: PAIN
     Dosage: PRN
  5. RECLAST [Concomitant]
     Active Substance: ZOLEDRONIC ACID
     Indication: BONE DISORDER
     Dosage: DUE IN JUL?2020 FOR OSTEO
  6. MINOCYCLINE ACTAVIS [Suspect]
     Active Substance: MINOCYCLINE HYDROCHLORIDE
     Indication: FIBROMYALGIA
  7. PAROXETINE. [Concomitant]
     Active Substance: PAROXETINE
  8. INDOCIN [Concomitant]
     Active Substance: INDOMETHACIN
  9. METHYLPREDNISOLONE. [Concomitant]
     Active Substance: METHYLPREDNISOLONE
     Dosage: 4 MG ALTERNATING WITH 6 MG QD
  10. OXYGEN. [Concomitant]
     Active Substance: OXYGEN
     Indication: CHRONIC OBSTRUCTIVE PULMONARY DISEASE
     Dosage: PRN
  11. DILTIAZEM. [Concomitant]
     Active Substance: DILTIAZEM
     Dosage: QD
  12. MINOCYCLINE ACTAVIS [Suspect]
     Active Substance: MINOCYCLINE HYDROCHLORIDE
     Indication: SYSTEMIC LUPUS ERYTHEMATOSUS
     Dosage: 200 MILLIGRAM DAILY;
     Route: 065
     Dates: start: 202001, end: 202006
  13. TRELEGY ELLIPTA [Concomitant]
     Active Substance: FLUTICASONE FUROATE\UMECLIDINIUM BROMIDE\VILANTEROL TRIFENATATE
     Indication: CHRONIC OBSTRUCTIVE PULMONARY DISEASE
     Dosage: FLUTICASONE FUROATE, UMECLIDINIUM, AND VILANTEROL INHALATION POWDER QD
  14. MINOCYCLINE ACTAVIS [Suspect]
     Active Substance: MINOCYCLINE HYDROCHLORIDE
     Indication: CHRONIC OBSTRUCTIVE PULMONARY DISEASE
  15. BIOCARDINE [Concomitant]
     Dosage: OPTICAL ONLY; USED PRIOR TO DRIVING (ABOUT ONCE PER YEAR AT NIGHT)

REACTIONS (4)
  - Skin discolouration [Recovering/Resolving]
  - Pigmentation disorder [Not Recovered/Not Resolved]
  - Product use in unapproved indication [Unknown]
  - Pain in extremity [Unknown]
